FAERS Safety Report 19995641 (Version 17)
Quarter: 2023Q2

REPORT INFORMATION
  Report Type: Report from Study
  Country: US (occurrence: US)
  Receive Date: 20211026
  Receipt Date: 20230627
  Transmission Date: 20230722
  Serious: Yes (Hospitalization, Other)
  Sender: FDA-Public Use
  Company Number: US-BIOVITRUM-2021US8614

PATIENT
  Age: 46 Year
  Sex: Female

DRUGS (8)
  1. KINERET [Suspect]
     Active Substance: ANAKINRA
     Indication: Rheumatoid arthritis
     Dosage: DAILY
     Route: 058
  2. KINERET [Suspect]
     Active Substance: ANAKINRA
     Indication: Pyrexia
     Dosage: DAILY
     Route: 058
  3. KINERET [Suspect]
     Active Substance: ANAKINRA
     Indication: Autoimmune disorder
     Dosage: DAILY
     Route: 058
  4. KINERET [Suspect]
     Active Substance: ANAKINRA
     Dosage: DAILY
     Route: 058
     Dates: start: 20190425
  5. KINERET [Suspect]
     Active Substance: ANAKINRA
     Dosage: DAILY
     Route: 058
     Dates: start: 20190425
  6. VITAMINS [Concomitant]
     Active Substance: VITAMINS
     Indication: Product used for unknown indication
  7. VITAMINS [Concomitant]
     Active Substance: VITAMINS
  8. VITAMINS [Concomitant]
     Active Substance: VITAMINS

REACTIONS (16)
  - Pain [Unknown]
  - Rheumatoid arthritis [Unknown]
  - Cerebrovascular accident [Unknown]
  - Vomiting [Unknown]
  - COVID-19 [Unknown]
  - Intentional product misuse [Not Recovered/Not Resolved]
  - Weight increased [Unknown]
  - Product dose omission issue [Unknown]
  - Blood calcium decreased [Not Recovered/Not Resolved]
  - Blood iron decreased [Unknown]
  - Loss of personal independence in daily activities [Recovering/Resolving]
  - Injection site pain [Unknown]
  - Depression [Unknown]
  - Drug ineffective [Unknown]
  - Gastritis [Unknown]
  - Hypovitaminosis [Unknown]

NARRATIVE: CASE EVENT DATE: 20190201
